FAERS Safety Report 9136689 (Version 1)
Quarter: 2013Q1

REPORT INFORMATION
  Report Type: Spontaneous
  Country: US (occurrence: US)
  Receive Date: 20130304
  Receipt Date: 20130304
  Transmission Date: 20140127
  Serious: No
  Sender: FDA-Public Use
  Company Number: US-ABBOTT-13P-163-1037740-00

PATIENT
  Age: 79 Year
  Sex: Male
  Weight: 72.64 kg

DRUGS (8)
  1. ANDROGEL [Suspect]
     Indication: HYPOGONADISM
     Dosage: APPLYING SHOULDERS, UPPER ARMS, ABDOMEN
     Route: 061
  2. ANDROGEL [Suspect]
     Dosage: APPLYING SHOULDERS, UPPER ARMS, ABDOMEN
     Route: 061
     Dates: end: 20130110
  3. VITAMIN D NOS [Concomitant]
     Indication: SUPPLEMENTATION THERAPY
  4. VITAMIN D NOS [Concomitant]
     Indication: ANDROGEN DEFICIENCY
  5. HYDROCHLOROTHIAZIDE [Concomitant]
     Indication: HYPERTENSION
     Route: 048
  6. AMLODIPINE/BENAZEPRIL [Concomitant]
     Indication: HYPERTENSION
  7. DORZOLAMIDE HCL AND TIMOLOL MALEATE [Concomitant]
     Indication: PRODUCT USED FOR UNKNOWN INDICATION
     Route: 047
  8. LATANOPROST [Concomitant]
     Indication: PRODUCT USED FOR UNKNOWN INDICATION
     Route: 047

REACTIONS (4)
  - Rash maculo-papular [Not Recovered/Not Resolved]
  - Application site erythema [Not Recovered/Not Resolved]
  - Application site oedema [Not Recovered/Not Resolved]
  - Pruritus [Recovered/Resolved]
